FAERS Safety Report 15919776 (Version 1)
Quarter: 2019Q1

REPORT INFORMATION
  Report Type: Spontaneous
  Country: JP (occurrence: JP)
  Receive Date: 20190205
  Receipt Date: 20190205
  Transmission Date: 20190417
  Serious: Yes (Death)
  Sender: FDA-Public Use
  Company Number: PHHY2018JP201012

PATIENT
  Age: 73 Year
  Sex: Female
  Weight: 45.8 kg

DRUGS (4)
  1. HYCAMTIN [Suspect]
     Active Substance: TOPOTECAN HYDROCHLORIDE
     Indication: OVARIAN CANCER
     Dosage: 1.7 MG, QD (UNK (1.7 MG/ DOSE X 5/WEEK)
     Route: 041
     Dates: start: 20181001, end: 20181005
  2. SANDOSTATIN [Suspect]
     Active Substance: OCTREOTIDE ACETATE
     Indication: SUBILEUS
     Dosage: 300 UG, QD
     Route: 058
     Dates: start: 20180830, end: 20181013
  3. DEXART [Concomitant]
     Active Substance: DEXAMETHASONE SODIUM PHOSPHATE
     Indication: PRODUCT USED FOR UNKNOWN INDICATION
     Dosage: UNK
     Route: 065
     Dates: start: 20181004
  4. GRANISETRON HYDROCHLORIDE. [Concomitant]
     Active Substance: GRANISETRON HYDROCHLORIDE
     Indication: PRODUCT USED FOR UNKNOWN INDICATION
     Dosage: UNK
     Route: 065
     Dates: start: 20181004

REACTIONS (1)
  - Pneumonia aspiration [Fatal]

NARRATIVE: CASE EVENT DATE: 20181013
